FAERS Safety Report 5129556-0 (Version None)
Quarter: 2006Q4

REPORT INFORMATION
  Report Type: 
  Country: None (occurrence: None)
  Receive Date: 20061012
  Receipt Date: 20060929
  Transmission Date: 20070319
  Serious: No
  Sender: FDA-Public Use
  Company Number: 2006S1008465

PATIENT
  Age: 45 Year
  Sex: Female
  Weight: 87.9978 kg

DRUGS (5)
  1. CLOZAPINE [Suspect]
     Indication: SCHIZOPHRENIA
     Dosage: 350 MG; HS; PO; SEE IMAGE
     Route: 048
     Dates: start: 20000304, end: 20060719
  2. CLOZAPINE [Suspect]
     Indication: SCHIZOPHRENIA
     Dosage: 350 MG; HS; PO; SEE IMAGE
     Route: 048
     Dates: start: 20060718
  3. LEVOTHYROXINE SODIUM [Concomitant]
  4. ZIPRASIDONE HCL [Concomitant]
  5. CITALOPRAM [Concomitant]

REACTIONS (3)
  - HALLUCINATION, AUDITORY [None]
  - INCORRECT DOSE ADMINISTERED [None]
  - SELF-INJURIOUS IDEATION [None]
